FAERS Safety Report 6838253-2 (Version None)
Quarter: 2010Q3

REPORT INFORMATION
  Report Type: 
  Country: None (occurrence: None)
  Receive Date: 20100713
  Receipt Date: 20070607
  Transmission Date: 20110219
  Serious: No
  Sender: FDA-Public Use
  Company Number: US-PFIZER INC-2007048354

PATIENT
  Sex: Female
  Weight: 75.3 kg

DRUGS (2)
  1. CHANTIX [Suspect]
     Indication: SMOKING CESSATION THERAPY
     Dates: start: 20070201, end: 20070301
  2. PRILOSEC [Concomitant]
     Indication: DYSPEPSIA

REACTIONS (3)
  - GASTROENTERITIS VIRAL [None]
  - NAUSEA [None]
  - WEIGHT INCREASED [None]
